FAERS Safety Report 9569239 (Version 1)
Quarter: 2013Q3

REPORT INFORMATION
  Report Type: Spontaneous
  Country: US (occurrence: US)
  Receive Date: 20130930
  Receipt Date: 20130930
  Transmission Date: 20140515
  Serious: No
  Sender: FDA-Public Use
  Company Number: US-AMGEN-USASP2013058692

PATIENT
  Age: 46 Year
  Sex: Female
  Weight: 79.37 kg

DRUGS (7)
  1. ENBREL [Suspect]
     Indication: PRODUCT USED FOR UNKNOWN INDICATION
     Dosage: 50 MG, 2 TIMES/WK
     Route: 058
  2. EFFEXOR [Concomitant]
     Dosage: 100 MG, UNK
  3. XANAX [Concomitant]
     Dosage: 0.25 MG, UNK
  4. BENADRYL ALLERGY                   /00000402/ [Concomitant]
     Dosage: 25 MG, UNK
  5. LEVOTHYROXIN [Concomitant]
     Dosage: 200 MUG, UNK
  6. CALCIUM + VITAMIN D                /01483701/ [Concomitant]
     Dosage: UNK
  7. LORTAB                             /00607101/ [Concomitant]
     Dosage: 7.5 MG, UNK

REACTIONS (2)
  - Pain in extremity [Unknown]
  - Arthralgia [Unknown]
